FAERS Safety Report 6700017-8 (Version None)
Quarter: 2010Q2

REPORT INFORMATION
  Report Type: 
  Country: None (occurrence: None)
  Receive Date: 20100427
  Receipt Date: 20100427
  Transmission Date: 20101027
  Serious: Yes (Hospitalization)
  Sender: FDA-Public Use
  Company Number: None

PATIENT
  Sex: Male
  Weight: 35.3 kg

DRUGS (12)
  1. DOXORUBICIN HCL [Suspect]
     Dosage: 73 MG
  2. CYTARABINE [Suspect]
     Dosage: 70 MG
  3. L-ASPARAGINASE [Suspect]
     Dosage: 9150 IU
  4. METHOTREXATE [Suspect]
     Dosage: 15 MG
  5. PREDNISONE [Suspect]
     Dosage: 928 MG
  6. VINCRISTINE SULFATE [Suspect]
     Dosage: 5.4 MG
  7. CASPOFUGIN [Concomitant]
  8. CEFTAZIDIME [Concomitant]
  9. CLINDAMYCIN [Concomitant]
  10. NYSTATIN [Concomitant]
  11. OXYMETAZOLINE INTRANASAL [Concomitant]
  12. VANCOMYCIN [Concomitant]

REACTIONS (23)
  - ACTIVATED PARTIAL THROMBOPLASTIN TIME PROLONGED [None]
  - APNOEA [None]
  - BRAIN INJURY [None]
  - CAROTID ARTERY OCCLUSION [None]
  - CAVERNOUS SINUS THROMBOSIS [None]
  - CELLULITIS ORBITAL [None]
  - CENTRAL NERVOUS SYSTEM LESION [None]
  - CEREBRAL INFARCTION [None]
  - DEHYDRATION [None]
  - EYE MOVEMENT DISORDER [None]
  - HYPONATRAEMIA [None]
  - INFECTION [None]
  - ISCHAEMIA [None]
  - METASTASIS [None]
  - MYDRIASIS [None]
  - NEUROLOGICAL DECOMPENSATION [None]
  - OTITIS MEDIA [None]
  - PANCYTOPENIA [None]
  - PERIORBITAL CELLULITIS [None]
  - PUPILS UNEQUAL [None]
  - PYREXIA [None]
  - SEPSIS [None]
  - SINUSITIS [None]
